FAERS Safety Report 20038866 (Version 1)
Quarter: 2021Q4

REPORT INFORMATION
  Report Type: Spontaneous
  Country: US (occurrence: US)
  Receive Date: 20211105
  Receipt Date: 20211105
  Transmission Date: 20220303
  Serious: No
  Sender: FDA-Public Use
  Company Number: US-GLAXOSMITHKLINE-US2021AMR227226

PATIENT
  Age: 75 Year
  Sex: Male

DRUGS (2)
  1. TRELEGY ELLIPTA [Suspect]
     Active Substance: FLUTICASONE FUROATE\UMECLIDINIUM BROMIDE\VILANTEROL TRIFENATATE
     Indication: Cough
     Dosage: 1 PUFF(S), QD, UNK, 200/62.5/25MCG 1X30D
     Dates: start: 20210401, end: 20211020
  2. SYMBICORT [Concomitant]
     Active Substance: BUDESONIDE\FORMOTEROL FUMARATE DIHYDRATE
     Indication: Product used for unknown indication
     Dosage: UNK
     Dates: start: 20211020

REACTIONS (10)
  - Dysphonia [Not Recovered/Not Resolved]
  - Oral mucosal discolouration [Recovered/Resolved]
  - Decreased appetite [Unknown]
  - Abdominal distension [Recovered/Resolved]
  - Flatulence [Unknown]
  - Eructation [Unknown]
  - Gastrointestinal pain [Recovered/Resolved]
  - Dizziness [Unknown]
  - Gastric disorder [Recovered/Resolved]
  - Device use error [Unknown]

NARRATIVE: CASE EVENT DATE: 20210930
